FAERS Safety Report 16481983 (Version 2)
Quarter: 2019Q3

REPORT INFORMATION
  Report Type: Report from Study
  Country: GB (occurrence: GB)
  Receive Date: 20190627
  Receipt Date: 20190814
  Transmission Date: 20191004
  Serious: Yes (Other)
  Sender: FDA-Public Use
  Company Number: GB-SA-2019SA144407

PATIENT
  Age: 79 Year
  Sex: Female

DRUGS (7)
  1. DISPERIN [ACETYLSALICYLIC ACID] [Concomitant]
     Indication: ANTICOAGULANT THERAPY
  2. EZETIMIBE. [Suspect]
     Active Substance: EZETIMIBE
     Indication: BLOOD CHOLESTEROL
     Dosage: 10 MG
     Dates: start: 1992
  3. COCODAMOL [Concomitant]
     Active Substance: ACETAMINOPHEN\CODEINE PHOSPHATE
     Indication: PAIN
     Dosage: UNK
  4. DISPERIN [ACETYLSALICYLIC ACID] [Concomitant]
     Indication: CARDIAC DISORDER
     Dosage: 75 MG
     Dates: start: 2011
  5. CARDIDE SR [Concomitant]
     Indication: BLOOD PRESSURE MEASUREMENT
     Dosage: 1-5 MG
     Dates: start: 2011
  6. ROSUVASTATIN. [Suspect]
     Active Substance: ROSUVASTATIN
     Indication: BLOOD CHOLESTEROL
     Dosage: 20 MG
     Dates: start: 1992
  7. ALIROCUMAB [Suspect]
     Active Substance: ALIROCUMAB
     Indication: TYPE IIA HYPERLIPIDAEMIA
     Dosage: 75 MG, QOW
     Route: 058
     Dates: start: 201811, end: 20190430

REACTIONS (5)
  - Lethargy [Recovered/Resolved]
  - Insomnia [Recovered/Resolved]
  - Gastric ulcer [Recovered/Resolved]
  - Depression [Not Recovered/Not Resolved]
  - Depressed mood [Not Recovered/Not Resolved]

NARRATIVE: CASE EVENT DATE: 201904
